FAERS Safety Report 8024053-7 (Version None)
Quarter: 2012Q1

REPORT INFORMATION
  Report Type: 
  Country: None (occurrence: None)
  Receive Date: 20120103
  Receipt Date: 20111217
  Transmission Date: 20120608
  Serious: Yes (Hospitalization)
  Sender: FDA-Public Use
  Company Number: 1145699

PATIENT
  Age: 34 Year
  Sex: Female

DRUGS (2)
  1. CEFTRIAXONE SODIUM [Suspect]
     Indication: POST PROCEDURAL INFECTION
     Dosage: NOT REPORTED, UNKNOWN, INTRAVENOUS (NOT OTHERWISE SPECIFIED)
     Route: 042
  2. VANCOMYCIN HCL [Suspect]
     Indication: POST PROCEDURAL INFECTION
     Dosage: NOT REPORTED, UNKNOWN, INTRAVENOUS (NOT OTHERWISE SPECIFIED)
     Route: 042

REACTIONS (5)
  - DRUG RASH WITH EOSINOPHILIA AND SYSTEMIC SYMPTOMS [None]
  - CYTOMEGALOVIRUS OESOPHAGITIS [None]
  - DUODENAL ULCER [None]
  - OESOPHAGEAL ULCER [None]
  - CYTOMEGALOVIRUS DUODENITIS [None]
